FAERS Safety Report 9470758 (Version 1)
Quarter: 2013Q3

REPORT INFORMATION
  Report Type: Spontaneous
  Country: US (occurrence: US)
  Receive Date: 20130822
  Receipt Date: 20130822
  Transmission Date: 20140515
  Serious: No
  Sender: FDA-Public Use
  Company Number: US-SANOFI-AVENTIS-2013SA079292

PATIENT
  Age: 65 Year
  Sex: Male

DRUGS (3)
  1. ZALTRAP [Suspect]
     Route: 065
  2. JEVTANA [Suspect]
     Indication: PROSTATE CANCER METASTATIC
     Route: 051
  3. ALPHA LIPOIC ACID [Concomitant]

REACTIONS (1)
  - Neuropathy peripheral [Not Recovered/Not Resolved]
